FAERS Safety Report 25104971 (Version 1)
Quarter: 2025Q1

REPORT INFORMATION
  Report Type: Spontaneous
  Country: US (occurrence: US)
  Receive Date: 20250321
  Receipt Date: 20250321
  Transmission Date: 20250409
  Serious: No
  Sender: GLAND PHARMA LTD
  Company Number: US-GLANDPHARMA-US-2025GLNSPO00788

PATIENT
  Age: 46 Year
  Sex: Female

DRUGS (37)
  1. GEMCITABINE [Suspect]
     Active Substance: GEMCITABINE
     Indication: Breast cancer stage IV
     Route: 065
     Dates: start: 202309
  2. GEMCITABINE [Suspect]
     Active Substance: GEMCITABINE
     Indication: Metastases to bone
  3. CISPLATIN [Suspect]
     Active Substance: CISPLATIN
     Indication: Breast cancer stage IV
     Route: 065
     Dates: start: 202309
  4. CISPLATIN [Suspect]
     Active Substance: CISPLATIN
     Indication: Metastases to bone
  5. LUPRON [Concomitant]
     Active Substance: LEUPROLIDE ACETATE
     Route: 065
  6. LUPRON [Concomitant]
     Active Substance: LEUPROLIDE ACETATE
     Indication: Metastases to bone
  7. ANASTROZOLE [Concomitant]
     Active Substance: ANASTROZOLE
     Route: 065
  8. ANASTROZOLE [Concomitant]
     Active Substance: ANASTROZOLE
     Indication: Metastases to bone
  9. IVERMECTIN [Concomitant]
     Active Substance: IVERMECTIN
     Route: 065
     Dates: start: 202310
  10. IVERMECTIN [Concomitant]
     Active Substance: IVERMECTIN
     Indication: Metastases to bone
     Route: 065
  11. OZONE [Concomitant]
     Active Substance: OZONE
     Route: 065
     Dates: start: 202310
  12. OZONE [Concomitant]
     Active Substance: OZONE
     Indication: Metastases to bone
  13. ALPHA LIPOIC ACID [Concomitant]
     Active Substance: .ALPHA.-LIPOIC ACID
     Route: 065
     Dates: start: 202310
  14. ALPHA LIPOIC ACID [Concomitant]
     Active Substance: .ALPHA.-LIPOIC ACID
     Indication: Metastases to bone
  15. AMINO ACIDS, SOURCE UNSPECIFIED [Concomitant]
     Active Substance: AMINO ACIDS, SOURCE UNSPECIFIED
     Route: 042
     Dates: start: 202310
  16. AMINO ACIDS, SOURCE UNSPECIFIED [Concomitant]
     Active Substance: AMINO ACIDS, SOURCE UNSPECIFIED
     Indication: Metastases to bone
  17. ARGININE [Concomitant]
     Active Substance: ARGININE
     Route: 042
     Dates: start: 202310
  18. ARGININE [Concomitant]
     Active Substance: ARGININE
     Indication: Metastases to bone
  19. COBALAMIN [Concomitant]
     Active Substance: COBALAMIN
     Route: 042
     Dates: start: 202310
  20. COBALAMIN [Concomitant]
     Active Substance: COBALAMIN
     Indication: Metastases to bone
  21. LEUCOVORIN [Concomitant]
     Active Substance: LEUCOVORIN\LEUCOVORIN CALCIUM
     Route: 042
     Dates: start: 202310
  22. LEUCOVORIN [Concomitant]
     Active Substance: LEUCOVORIN\LEUCOVORIN CALCIUM
     Indication: Metastases to bone
  23. DEXPANTHENOL [Concomitant]
     Active Substance: DEXPANTHENOL
     Route: 042
     Dates: start: 202310
  24. MAGNESIUM [Concomitant]
     Active Substance: MAGNESIUM
     Route: 042
     Dates: start: 202310
  25. MAGNESIUM [Concomitant]
     Active Substance: MAGNESIUM
     Indication: Metastases to bone
  26. PYRIDOXINE\THIAMINE [Concomitant]
     Active Substance: PYRIDOXINE\THIAMINE
     Route: 042
     Dates: start: 202310
  27. PYRIDOXINE\THIAMINE [Concomitant]
     Active Substance: PYRIDOXINE\THIAMINE
     Indication: Metastases to bone
  28. ZINC [Concomitant]
     Active Substance: ZINC
     Route: 042
     Dates: start: 202310
  29. ZINC [Concomitant]
     Active Substance: ZINC
     Indication: Metastases to bone
  30. DIETARY SUPPLEMENT [Concomitant]
     Active Substance: DIETARY SUPPLEMENT
     Route: 042
     Dates: start: 202310
  31. DIETARY SUPPLEMENT [Concomitant]
     Active Substance: DIETARY SUPPLEMENT
     Indication: Metastases to bone
  32. FENBENDAZOLE [Concomitant]
     Active Substance: FENBENDAZOLE
     Route: 065
  33. FENBENDAZOLE [Concomitant]
     Active Substance: FENBENDAZOLE
     Indication: Metastases to bone
  34. MEBENDAZOLE [Concomitant]
     Active Substance: MEBENDAZOLE
     Route: 065
  35. MEBENDAZOLE [Concomitant]
     Active Substance: MEBENDAZOLE
     Indication: Metastases to bone
  36. MELATONIN [Concomitant]
     Active Substance: MELATONIN
     Route: 065
  37. MELATONIN [Concomitant]
     Active Substance: MELATONIN
     Indication: Metastases to bone

REACTIONS (2)
  - Drug ineffective [Unknown]
  - Product use in unapproved indication [Unknown]
